FAERS Safety Report 6988759-0 (Version None)
Quarter: 2010Q3

REPORT INFORMATION
  Report Type: 
  Country: None (occurrence: None)
  Receive Date: 20100916
  Receipt Date: 20100907
  Transmission Date: 20110219
  Serious: No
  Sender: FDA-Public Use
  Company Number: MX-ABBOTT-10P-107-0628336-00

PATIENT
  Sex: Female
  Weight: 69 kg

DRUGS (5)
  1. NIASPAN [Suspect]
     Indication: HYPERTRIGLYCERIDAEMIA
     Dates: start: 20100120, end: 20100122
  2. NIASPAN [Suspect]
     Dosage: DOSE DECREASED
  3. PRAVASTATIN [Concomitant]
     Indication: PRODUCT USED FOR UNKNOWN INDICATION
     Dates: start: 20100120
  4. BEZAFIBRATE [Concomitant]
     Indication: PRODUCT USED FOR UNKNOWN INDICATION
     Dates: start: 20100120
  5. ZINTREPID [Concomitant]
     Indication: PRODUCT USED FOR UNKNOWN INDICATION
     Dosage: 1 TABLET AT NIGHT
     Route: 048
     Dates: start: 20100120

REACTIONS (6)
  - DRY SKIN [None]
  - DYSPNOEA [None]
  - HYPERHIDROSIS [None]
  - RESTLESSNESS [None]
  - SENSORY DISTURBANCE [None]
  - TACHYCARDIA [None]
